FAERS Safety Report 15706991 (Version 1)
Quarter: 2018Q4

REPORT INFORMATION
  Report Type: Spontaneous
  Country: US (occurrence: US)
  Receive Date: 20181210
  Receipt Date: 20181210
  Transmission Date: 20190205
  Serious: No
  Sender: FDA-Public Use
  Company Number: US-TEVA-2018-US-982934

PATIENT
  Sex: Female

DRUGS (2)
  1. CLONAZEPAM ACTAVIS [Suspect]
     Active Substance: CLONAZEPAM
     Indication: PANIC DISORDER
     Dates: start: 201811
  2. CLONAZEPAM ACTAVIS [Suspect]
     Active Substance: CLONAZEPAM
     Indication: ANXIETY DISORDER

REACTIONS (3)
  - Fatigue [Unknown]
  - Product substitution issue [Unknown]
  - Irritability [Unknown]

NARRATIVE: CASE EVENT DATE: 20181125
